FAERS Safety Report 8601117-8 (Version None)
Quarter: 2012Q3

REPORT INFORMATION
  Report Type: 
  Country: None (occurrence: None)
  Receive Date: 20120817
  Receipt Date: 20120816
  Transmission Date: 20120928
  Serious: Yes (Other)
  Sender: FDA-Public Use
  Company Number: PHHY2011AU94516

PATIENT
  Sex: Female

DRUGS (4)
  1. IMATINIB MESYLATE [Suspect]
     Dosage: 400 MG, DAILY
     Route: 048
     Dates: start: 20110901
  2. IMATINIB MESYLATE [Suspect]
     Dosage: 400 MG, DAILY
     Route: 048
     Dates: start: 20111001, end: 20120601
  3. IMATINIB MESYLATE [Suspect]
     Indication: CHRONIC MYELOID LEUKAEMIA
     Dosage: 400 MG, BID
     Route: 048
     Dates: start: 20110922
  4. INSULIN [Concomitant]
     Dosage: UNK
     Route: 058

REACTIONS (7)
  - GENERALISED OEDEMA [None]
  - VISUAL IMPAIRMENT [None]
  - FLUID RETENTION [None]
  - PERIORBITAL OEDEMA [None]
  - RASH [None]
  - MUSCLE SPASMS [None]
  - ALOPECIA [None]
